FAERS Safety Report 8557136-3 (Version None)
Quarter: 2012Q3

REPORT INFORMATION
  Report Type: 
  Country: None (occurrence: None)
  Receive Date: 20120801
  Receipt Date: 20120720
  Transmission Date: 20120928
  Serious: Yes (Life-Threatening, Hospitalization)
  Sender: FDA-Public Use
  Company Number: FR-PFIZER INC-2012178673

PATIENT
  Age: 44 Year

DRUGS (1)
  1. ARGATROBAN [Suspect]
     Indication: HEPARIN-INDUCED THROMBOCYTOPENIA
     Dosage: 100 MG/ML
     Route: 042
     Dates: start: 20120708, end: 20120709

REACTIONS (2)
  - PROTHROMBIN TIME SHORTENED [None]
  - ACTIVATED PARTIAL THROMBOPLASTIN TIME PROLONGED [None]
